FAERS Safety Report 22200951 (Version 1)
Quarter: 2023Q2

REPORT INFORMATION
  Report Type: Spontaneous
  Country: NL (occurrence: NL)
  Receive Date: 20230412
  Receipt Date: 20230412
  Transmission Date: 20230721
  Serious: Yes (Other)
  Sender: FDA-Public Use
  Company Number: NL-LRB-00873177

PATIENT
  Sex: Male
  Weight: 95 kg

DRUGS (2)
  1. EZETIMIBE [Suspect]
     Active Substance: EZETIMIBE
     Indication: Hypercholesterolaemia
     Dosage: 1 DOSAGE FORM, ONCE A DAY(1 PER DAG)
     Route: 065
     Dates: start: 20220101, end: 20230313
  2. PHENPROCOUMON [Concomitant]
     Active Substance: PHENPROCOUMON
     Indication: Product used for unknown indication
     Dosage: 1 DOSAGE FORM, DAILY(ABOUT 1 TABLET PER DAY)
     Route: 065

REACTIONS (3)
  - Neuropathy peripheral [Recovered/Resolved]
  - Arthralgia [Recovering/Resolving]
  - Loss of libido [Recovering/Resolving]
